FAERS Safety Report 9912547 (Version 1)
Quarter: 2014Q1

REPORT INFORMATION
  Report Type: Spontaneous
  Country: US (occurrence: None)
  Receive Date: 20140218
  Receipt Date: 20140218
  Transmission Date: 20141002
  Serious: No
  Sender: FDA-Public Use
  Company Number: None

PATIENT
  Age: 77 Year
  Sex: Male
  Weight: 88.1 kg

DRUGS (2)
  1. CYTARABINE [Suspect]
     Dates: start: 20140115
  2. DAUNORUBICIN [Suspect]
     Dates: start: 20140111

REACTIONS (6)
  - Dyspnoea [None]
  - Depressed level of consciousness [None]
  - Oxygen saturation decreased [None]
  - Pulmonary function test abnormal [None]
  - Pulmonary oedema [None]
  - Unresponsive to stimuli [None]
